FAERS Safety Report 11107148 (Version 2)
Quarter: 2015Q2

REPORT INFORMATION
  Report Type: Spontaneous
  Country: US (occurrence: US)
  Receive Date: 20150512
  Receipt Date: 20150611
  Transmission Date: 20150821
  Serious: Yes (Hospitalization)
  Sender: FDA-Public Use
  Company Number: US-ARIAD PHARMACEUTICALS, INC-2015US004928

PATIENT

DRUGS (2)
  1. ANTIFUNGAL [Concomitant]
     Active Substance: MICONAZOLE NITRATE\TERBINAFINE HYDROCHLORIDE
     Indication: PRODUCT USED FOR UNKNOWN INDICATION
  2. ICLUSIG [Suspect]
     Active Substance: PONATINIB
     Indication: CHRONIC MYELOID LEUKAEMIA
     Dosage: 45 MG, QD
     Route: 048
     Dates: start: 20140930

REACTIONS (2)
  - Hepatic enzyme increased [Recovered/Resolved]
  - Graft versus host disease [Not Recovered/Not Resolved]
